FAERS Safety Report 7033110-3 (Version None)
Quarter: 2010Q4

REPORT INFORMATION
  Report Type: 
  Country: None (occurrence: None)
  Receive Date: 20101007
  Receipt Date: 20101001
  Transmission Date: 20110411
  Serious: Yes (Other)
  Sender: FDA-Public Use
  Company Number: IT-PFIZER INC-2010125558

PATIENT

DRUGS (2)
  1. FLUCONAZOLE [Suspect]
  2. METHADONE [Suspect]

REACTIONS (1)
  - VENTRICULAR ARRHYTHMIA [None]
